FAERS Safety Report 6358737-3 (Version None)
Quarter: 2009Q3

REPORT INFORMATION
  Report Type: 
  Country: None (occurrence: None)
  Receive Date: 20090914
  Receipt Date: 20090901
  Transmission Date: 20100115
  Serious: Yes (Death, Hospitalization)
  Sender: FDA-Public Use
  Company Number: 2009AL001273

PATIENT
  Age: 50 Year
  Sex: Male

DRUGS (49)
  1. DIGOXIN [Suspect]
     Dosage: 0.25MG, DAILY, PO 0.125MG, DAILY, PO
     Route: 048
  2. QUINIDEX [Concomitant]
  3. VASOTEC [Concomitant]
  4. ISMO [Concomitant]
  5. PREDNISONE TAB [Concomitant]
  6. ASPIRIN [Concomitant]
  7. COUMADIN [Concomitant]
  8. ZOCOR [Concomitant]
  9. CAPTOPRIL [Concomitant]
  10. GLUCOVANCE [Concomitant]
  11. COREG [Concomitant]
  12. SPIRIVA [Concomitant]
  13. SOMA [Concomitant]
  14. ISOSORBIDE [Concomitant]
  15. PRILOSEC [Concomitant]
  16. LASIX [Concomitant]
  17. GLYBURIDE [Concomitant]
  18. SYNTHROID [Concomitant]
  19. XANAX [Concomitant]
  20. SIMVASTATIN [Concomitant]
  21. LANTUS [Concomitant]
  22. JENUVIA [Concomitant]
  23. KAY CIEL DURA-TABS [Concomitant]
  24. ACTOS [Concomitant]
  25. AMIODARONE HCL [Concomitant]
  26. CARISOPRODOL [Concomitant]
  27. LEVOTHYROXINE SODIUM [Concomitant]
  28. POTASSIUM CHLORIDE [Concomitant]
  29. PRILOSEC [Concomitant]
  30. ADVAIR DISKUS 100/50 [Concomitant]
  31. METOLAZONE [Concomitant]
  32. ZOCAR [Concomitant]
  33. PROMETHAZINE [Concomitant]
  34. HYDROCODONE [Concomitant]
  35. ALBUTEROL [Concomitant]
  36. NOVOLIN R [Concomitant]
  37. ZOLPIDEM [Concomitant]
  38. METOLAZONE [Concomitant]
  39. COMBIVENT [Concomitant]
  40. AMIODARONE HCL [Concomitant]
  41. PROCHLORPERAZINE [Concomitant]
  42. ADVAIR DISKUS 100/50 [Concomitant]
  43. DOXYCCLINE [Concomitant]
  44. METHYLPREDNISOLONE ACETATE [Concomitant]
  45. OMNICEF [Concomitant]
  46. CHANTIX [Concomitant]
  47. CELEBREX [Concomitant]
  48. GLUCOVANCE [Concomitant]
  49. NITROGLYCERIN [Concomitant]

REACTIONS (30)
  - ALCOHOL ABUSE [None]
  - ALOPECIA [None]
  - AORTIC BYPASS [None]
  - ARTERIOSCLEROSIS [None]
  - ATRIAL FIBRILLATION [None]
  - ATRIAL FLUTTER [None]
  - BLOOD GLUCOSE DECREASED [None]
  - CARDIAC FAILURE CONGESTIVE [None]
  - CARDIOACTIVE DRUG LEVEL ABOVE THERAPEUTIC [None]
  - CEREBROVASCULAR ACCIDENT [None]
  - CHEST PAIN [None]
  - CREPITATIONS [None]
  - DYSPNOEA [None]
  - ECONOMIC PROBLEM [None]
  - GAIT DISTURBANCE [None]
  - HEART RATE INCREASED [None]
  - HYPERTENSION [None]
  - INJURY [None]
  - LETHARGY [None]
  - MOTOR DYSFUNCTION [None]
  - MYOCARDIAL INFARCTION [None]
  - OEDEMA PERIPHERAL [None]
  - PERICARDITIS [None]
  - PLEURAL EFFUSION [None]
  - PULMONARY HILUM MASS [None]
  - PULSE ABSENT [None]
  - SPEECH DISORDER [None]
  - TOBACCO USER [None]
  - UNEVALUABLE EVENT [None]
  - UPPER GASTROINTESTINAL HAEMORRHAGE [None]
